FAERS Safety Report 15362187 (Version 1)
Quarter: 2018Q3

REPORT INFORMATION
  Report Type: Spontaneous
  Country: PT (occurrence: PT)
  Receive Date: 20180907
  Receipt Date: 20180907
  Transmission Date: 20181010
  Serious: Yes (Other)
  Sender: FDA-Public Use
  Company Number: PHHY2018PT092142

PATIENT
  Age: 23 Year
  Weight: 97 kg

DRUGS (1)
  1. NILOTINIB [Suspect]
     Active Substance: NILOTINIB
     Indication: CHRONIC MYELOID LEUKAEMIA
     Dosage: 300 MG, (12 EM 12 H)
     Route: 048

REACTIONS (1)
  - Salivary gland calculus [Not Recovered/Not Resolved]

NARRATIVE: CASE EVENT DATE: 20180523
